FAERS Safety Report 4928726-1 (Version None)
Quarter: 2006Q1

REPORT INFORMATION
  Report Type: 
  Country: None (occurrence: None)
  Receive Date: 20060227
  Receipt Date: 20060227
  Transmission Date: 20060701
  Serious: Yes (Life-Threatening, Hospitalization, Other)
  Sender: FDA-Public Use
  Company Number: None

PATIENT
  Age: 51 Year
  Sex: Female
  Weight: 56.246 kg

DRUGS (1)
  1. SEASONALE [Suspect]
     Indication: MENSTRUAL DISORDER
     Dosage: 30 TABLETS DAILY PO
     Route: 048
     Dates: start: 20050609, end: 20050809

REACTIONS (4)
  - BREAST CANCER IN SITU [None]
  - DEEP VEIN THROMBOSIS [None]
  - PULMONARY EMBOLISM [None]
  - UTERINE LEIOMYOMA [None]
